FAERS Safety Report 8882498 (Version 1)
Quarter: 2012Q4

REPORT INFORMATION
  Report Type: 
  Country: US (occurrence: US)
  Receive Date: 20121105
  Receipt Date: 20121105
  Transmission Date: 20130627
  Serious: Yes (Hospitalization)
  Sender: FDA-Public Use
  Company Number: US-SANOFI-AVENTIS-2012SA078664

PATIENT
  Age: 68 Year
  Sex: Female

DRUGS (8)
  1. LANTUS SOLOSTAR [Suspect]
     Indication: TYPE 2 DIABETES MELLITUS
     Dosage: Dose:50 unit(s)
     Route: 058
  2. LANTUS SOLOSTAR [Suspect]
     Indication: TYPE 2 DIABETES MELLITUS
     Dosage: Dose:62 unit(s)
     Route: 058
     Dates: start: 20120926
  3. LANTUS SOLOSTAR [Suspect]
     Indication: TYPE 2 DIABETES MELLITUS
     Dosage: Dose:62 unit(s)
     Route: 058
     Dates: start: 20120926
  4. LANTUS SOLOSTAR [Suspect]
     Indication: TYPE 2 DIABETES MELLITUS
     Dosage: Dose:50 unit(s)
     Route: 058
  5. SOLOSTAR [Suspect]
  6. SOLOSTAR [Suspect]
  7. ANTIHYPERTENSIVES [Concomitant]
     Indication: HYPERTENSION
  8. CHOLESTEROL- AND TRIGLYCERIDE REDUCERS [Concomitant]
     Indication: CHOLESTEROL

REACTIONS (1)
  - Cerebrovascular accident [Not Recovered/Not Resolved]
